FAERS Safety Report 12408099 (Version 3)
Quarter: 2016Q2

REPORT INFORMATION
  Report Type: Spontaneous
  Country: None (occurrence: US)
  Receive Date: 20160526
  Receipt Date: 20160608
  Transmission Date: 20160815
  Serious: No
  Sender: FDA-Public Use
  Company Number: US-RARE DISEASE THERAPEUTICS, INC.-1052848

PATIENT
  Age: 55 Year
  Sex: Male

DRUGS (8)
  1. CYSTADANE [Suspect]
     Active Substance: BETAINE
     Indication: VITAMIN B12 DEFICIENCY
     Route: 048
     Dates: start: 20141031
  2. LEVOCARNITINE. [Concomitant]
     Active Substance: LEVOCARNITINE
  3. PRINIVIL [Concomitant]
     Active Substance: LISINOPRIL
  4. HYDROXOCOBALAMIN ACETATE. [Concomitant]
     Active Substance: HYDROXOCOBALAMIN ACETATE
  5. LEUCOVORIN. [Concomitant]
     Active Substance: LEUCOVORIN
  6. AMLODIPINE [Concomitant]
     Active Substance: AMLODIPINE BESYLATE
  7. RANITIDINE. [Concomitant]
     Active Substance: RANITIDINE
  8. LEVOTHYROXINE. [Concomitant]
     Active Substance: LEVOTHYROXINE

REACTIONS (2)
  - Abdominal pain [Recovered/Resolved]
  - Prescribed overdose [Unknown]

NARRATIVE: CASE EVENT DATE: 20160429
